FAERS Safety Report 9931184 (Version 1)
Quarter: 2014Q1

REPORT INFORMATION
  Report Type: Spontaneous
  Country: CA (occurrence: CA)
  Receive Date: 20140228
  Receipt Date: 20140228
  Transmission Date: 20141002
  Serious: Yes (Other)
  Sender: FDA-Public Use
  Company Number: CA-AMGEN-CANSP2014013800

PATIENT
  Age: 60 Year
  Sex: Female

DRUGS (5)
  1. ENBREL [Suspect]
     Indication: PSORIATIC ARTHROPATHY
     Dosage: 50 MG, UNK
     Route: 065
     Dates: start: 20110915
  2. SYNTHROID [Concomitant]
     Dosage: UNK
  3. NADOLOL [Concomitant]
     Dosage: UNK
  4. PANTOPRAZOLE [Concomitant]
     Dosage: 40 MG, UNK
  5. FUROSEMIDE [Concomitant]
     Dosage: 40 MG, UNK

REACTIONS (2)
  - Transient ischaemic attack [Recovered/Resolved]
  - Tooth extraction [Recovered/Resolved]
